FAERS Safety Report 6108989-X (Version None)
Quarter: 2009Q1

REPORT INFORMATION
  Report Type: 
  Country: None (occurrence: None)
  Receive Date: 20090310
  Receipt Date: 20090226
  Transmission Date: 20090719
  Serious: Yes (Hospitalization)
  Sender: FDA-Public Use
  Company Number: FR-ELI_LILLY_AND_COMPANY-FR200902007409

PATIENT
  Sex: Female

DRUGS (13)
  1. OPTRUMA [Suspect]
     Dosage: 60 MG, DAILY (1/D)
     Route: 048
     Dates: end: 20081013
  2. DOXORUBICIN HCL [Concomitant]
     Indication: OVARIAN CANCER
     Dosage: 50 MG/M2, 4/W
     Route: 065
     Dates: start: 20080615, end: 20080915
  3. OROCAL VITAMIN D [Concomitant]
     Dosage: 1 D/F, DAILY (1/D)
     Route: 048
     Dates: end: 20081010
  4. TAHOR [Concomitant]
     Dosage: 10 MG, DAILY (1/D)
     Route: 048
     Dates: end: 20081023
  5. GENTAMYCIN SULFATE [Concomitant]
     Indication: PLEURISY
     Dosage: UNK, UNKNOWN
     Route: 065
     Dates: start: 20081003
  6. VANCOMYCIN [Concomitant]
     Indication: PLEURISY
     Dosage: UNK, UNKNOWN
     Route: 065
     Dates: start: 20081003
  7. PYRIDOXINE [Concomitant]
     Dosage: UNK, UNKNOWN
     Route: 065
  8. LANTUS [Concomitant]
     Dosage: UNK, UNKNOWN
     Route: 065
  9. NOVORAPID [Concomitant]
     Dosage: UNK, UNKNOWN
     Route: 065
  10. FORLAX [Concomitant]
     Dosage: UNK, UNKNOWN
     Route: 065
  11. DEXTROSE 5% [Concomitant]
     Dosage: UNK, UNKNOWN
     Route: 065
  12. LEVOTHYROXINE SODIUM [Concomitant]
     Dosage: UNK, UNKNOWN
     Route: 065
  13. STAGID [Concomitant]
     Dosage: UNK, UNKNOWN
     Route: 065

REACTIONS (6)
  - ERYTHEMA [None]
  - FEELING HOT [None]
  - PALMAR-PLANTAR ERYTHRODYSAESTHESIA SYNDROME [None]
  - PIGMENTATION DISORDER [None]
  - PRURITUS GENITAL [None]
  - RASH PUSTULAR [None]
